FAERS Safety Report 18957383 (Version 1)
Quarter: 2021Q1

REPORT INFORMATION
  Report Type: Spontaneous
  Country: US (occurrence: US)
  Receive Date: 20210301
  Receipt Date: 20210301
  Transmission Date: 20210420
  Serious: Yes (Disabling)
  Sender: FDA-Public Use
  Company Number: None

PATIENT
  Age: 40 Year
  Sex: Female
  Weight: 66.6 kg

DRUGS (5)
  1. VITAMIN C [Concomitant]
     Active Substance: ASCORBIC ACID
  2. DAILY VITAMIN [Concomitant]
     Active Substance: VITAMINS
  3. ETHINYL ESTRADIOL?ETONOGESTREL VAGINAL RING [Suspect]
     Active Substance: ETHINYL ESTRADIOL\ETONOGESTREL
     Indication: DRUG THERAPY
     Dosage: ?          QUANTITY:1 RING;OTHER FREQUENCY:MONTHLY; RING?
     Route: 067
     Dates: start: 20210213, end: 20210221
  4. NUVARING [Concomitant]
     Active Substance: ETHINYL ESTRADIOL\ETONOGESTREL
  5. VITAMIN D [Concomitant]
     Active Substance: VITAMIN D NOS

REACTIONS (7)
  - Headache [None]
  - Abdominal pain [None]
  - Mood swings [None]
  - Depression [None]
  - Nausea [None]
  - Diarrhoea [None]
  - Night sweats [None]

NARRATIVE: CASE EVENT DATE: 20210215
